FAERS Safety Report 9626361 (Version 1)
Quarter: 2013Q4

REPORT INFORMATION
  Report Type: Spontaneous
  Country: US (occurrence: None)
  Receive Date: 20131015
  Receipt Date: 20131015
  Transmission Date: 20140711
  Serious: Yes (Other)
  Sender: FDA-Public Use
  Company Number: None

PATIENT
  Age: 42 Year
  Sex: Female
  Weight: 104.33 kg

DRUGS (1)
  1. TOPIRAMATE [Suspect]
     Indication: MIGRAINE
     Route: 048
     Dates: start: 20131007, end: 20131013

REACTIONS (11)
  - Joint swelling [None]
  - Gait disturbance [None]
  - Erythema [None]
  - Feeling hot [None]
  - Back pain [None]
  - Tinnitus [None]
  - Arthralgia [None]
  - Blister [None]
  - Balance disorder [None]
  - Dysstasia [None]
  - Pain in extremity [None]
